FAERS Safety Report 13392920 (Version 2)
Quarter: 2017Q2

REPORT INFORMATION
  Report Type: Spontaneous
  Country: GR (occurrence: GR)
  Receive Date: 20170331
  Receipt Date: 20170411
  Transmission Date: 20170830
  Serious: Yes (Other)
  Sender: FDA-Public Use
  Company Number: GR-MYLANLABS-2017M1019940

PATIENT

DRUGS (1)
  1. CLOZAPINE. [Suspect]
     Active Substance: CLOZAPINE
     Indication: SCHIZOPHRENIA
     Dosage: UNK

REACTIONS (5)
  - Leukocytosis [Recovered/Resolved]
  - Pyrexia [Recovered/Resolved]
  - Cardiotoxicity [Recovered/Resolved]
  - Troponin increased [Recovered/Resolved]
  - C-reactive protein increased [Recovered/Resolved]
